FAERS Safety Report 5891770-4 (Version None)
Quarter: 2008Q3

REPORT INFORMATION
  Report Type: 
  Country: None (occurrence: None)
  Receive Date: 20080908
  Receipt Date: 20080806
  Transmission Date: 20090109
  Serious: No
  Sender: FDA-Public Use
  Company Number: 002#2#2008-00630

PATIENT
  Age: 71 Year
  Sex: Female
  Weight: 55.3388 kg

DRUGS (5)
  1. NEUPRO [Suspect]
     Indication: PARKINSON'S DISEASE
     Dosage: 6MG/24H, 1 IN 1 D, TRANSDERMAL
     Route: 062
     Dates: start: 20071101
  2. STUDY DRUG T04501 [Suspect]
     Indication: PARKINSON'S DISEASE
     Dosage: 1DF, 4 IN 1 D, ORAL
     Route: 048
  3. SINEMET [Concomitant]
  4. SEGELINE [Concomitant]
  5. AMANTADINE HCL [Concomitant]

REACTIONS (2)
  - HYPOAESTHESIA [None]
  - PHARMACEUTICAL PRODUCT COMPLAINT [None]
